FAERS Safety Report 15352016 (Version 4)
Quarter: 2018Q3

REPORT INFORMATION
  Report Type: Report from Study
  Country: ES (occurrence: ES)
  Receive Date: 20180905
  Receipt Date: 20180927
  Transmission Date: 20181010
  Serious: Yes (Hospitalization)
  Sender: FDA-Public Use
  Company Number: ES-AMGEN-ESPCT2018120903

PATIENT
  Age: 79 Year
  Sex: Male
  Weight: 60 kg

DRUGS (17)
  1. IRINOTECAN [Suspect]
     Active Substance: IRINOTECAN
     Indication: COLORECTAL CANCER METASTATIC
     Dosage: 302 MG, Q2WK
     Route: 042
     Dates: start: 20180801
  2. SULFAMETOXAZOL [Concomitant]
     Active Substance: SULFAMETHOXAZOLE
     Indication: LYMPHOPENIA
     Dosage: 800 MG, QD
     Route: 048
     Dates: start: 20180820, end: 20180904
  3. 5?FU [Suspect]
     Active Substance: FLUOROURACIL
     Indication: COLORECTAL CANCER
     Dosage: 700 MG, Q2WK
     Route: 040
     Dates: start: 20180328
  4. FOLINIC ACID [Suspect]
     Active Substance: LEUCOVORIN
     Indication: COLORECTAL CANCER METASTATIC
     Dosage: 700 MG, Q2WK
     Route: 042
     Dates: start: 20180801
  5. ACIDO FOLINICO [Concomitant]
     Active Substance: LEUCOVORIN CALCIUM
     Indication: LYMPHOPENIA
     Dosage: 15 MG, QD
     Route: 048
     Dates: start: 20180820, end: 20180904
  6. 5?FU [Suspect]
     Active Substance: FLUOROURACIL
     Indication: COLORECTAL CANCER METASTATIC
     Dosage: 538 MG, Q2WK
     Route: 040
     Dates: start: 20180801
  7. 5?FU [Suspect]
     Active Substance: FLUOROURACIL
     Dosage: 4032 MG, Q2WK
     Route: 041
     Dates: start: 20180801
  8. TRIMETOPRIM [Concomitant]
     Active Substance: TRIMETHOPRIM
     Indication: LYMPHOPENIA
     Dosage: 160 MG, QD
     Route: 048
     Dates: start: 20180820, end: 20180904
  9. 5?FU [Suspect]
     Active Substance: FLUOROURACIL
     Dosage: 4200 MG, Q2WK
     Route: 041
     Dates: start: 20180328
  10. PANITUMUMAB [Suspect]
     Active Substance: PANITUMUMAB
     Indication: COLORECTAL CANCER METASTATIC
     Dosage: 365 MG, Q2WK
     Route: 042
     Dates: start: 20180801, end: 20180918
  11. DEXAMETASON [Concomitant]
     Active Substance: DEXAMETHASONE
     Indication: ASTHENIA
     Dosage: 2 MG, QD
     Route: 048
     Dates: start: 20180703, end: 20180819
  12. HEPARINA [Concomitant]
     Active Substance: HEPARIN SODIUM
     Indication: PROPHYLAXIS
     Dosage: 3500 IU, UNK
     Route: 058
     Dates: start: 20180815
  13. IRINOTECAN [Suspect]
     Active Substance: IRINOTECAN
     Indication: COLORECTAL CANCER
     Dosage: 315 MG, Q2WK
     Route: 042
     Dates: start: 20180328
  14. MAGNOGENE [Concomitant]
     Indication: HYPOMAGNESAEMIA
     Dosage: 212 MG, QID
     Route: 048
     Dates: start: 20180508
  15. LIDOCAINE. [Concomitant]
     Active Substance: LIDOCAINE
     Indication: MUCOSAL INFLAMMATION
     Dosage: 3 APPL
     Dates: start: 20180815
  16. PANITUMUMAB [Suspect]
     Active Substance: PANITUMUMAB
     Indication: COLORECTAL CANCER
     Dosage: 406 MG, Q2WK
     Route: 042
     Dates: start: 20180328
  17. FOLINIC ACID [Suspect]
     Active Substance: LEUCOVORIN
     Indication: COLORECTAL CANCER
     Dosage: 700 MG, Q2WK
     Route: 042
     Dates: start: 20180328

REACTIONS (2)
  - Pneumonitis chemical [Recovered/Resolved]
  - Febrile neutropenia [Recovered/Resolved]

NARRATIVE: CASE EVENT DATE: 20180815
